FAERS Safety Report 4681899-0 (Version None)
Quarter: 2005Q2

REPORT INFORMATION
  Report Type: 
  Country: None (occurrence: None)
  Receive Date: 20050602
  Receipt Date: 20050524
  Transmission Date: 20051028
  Serious: Yes (Death, Hospitalization)
  Sender: FDA-Public Use
  Company Number: 2005079202

PATIENT
  Age: 70 Year
  Sex: Male

DRUGS (2)
  1. CITALOR (ATORVASTATIN) [Suspect]
     Indication: DYSLIPIDAEMIA
     Dosage: 10 MG (10 MG, 1 IN 1 D), ORAL
     Route: 048
     Dates: start: 20030301
  2. INSULIN [Concomitant]

REACTIONS (3)
  - METASTASES TO LUNG [None]
  - NEUROENDOCRINE CARCINOMA OF THE SKIN [None]
  - NODULE ON EXTREMITY [None]
